FAERS Safety Report 9749370 (Version 2)
Quarter: 2013Q4

REPORT INFORMATION
  Report Type: Spontaneous
  Country: US (occurrence: US)
  Receive Date: 20131212
  Receipt Date: 20131212
  Transmission Date: 20140711
  Serious: Yes (Hospitalization)
  Sender: FDA-Public Use
  Company Number: US-B.I. PHARMACEUTICALS,INC./RIDGEFIELD-2013-BI-18562BP

PATIENT
  Sex: Female
  Weight: 64.86 kg

DRUGS (13)
  1. PRADAXA [Suspect]
     Indication: ANTICOAGULANT THERAPY
     Dosage: 300 MG
     Dates: start: 20120425, end: 20120506
  2. PRADAXA [Suspect]
     Indication: ATRIAL FIBRILLATION
  3. CORDARONE [Concomitant]
     Indication: ATRIAL FIBRILLATION
     Dosage: 400 MG
  4. COREG [Concomitant]
     Dosage: 6.25 MG
     Dates: start: 2011
  5. TRICOR [Concomitant]
     Indication: HYPERTRIGLYCERIDAEMIA
     Dosage: 145 MG
  6. LASIX [Concomitant]
     Dosage: 40 MG
  7. GARLIC [Concomitant]
     Dosage: 1000 MG
  8. AMARYL [Concomitant]
     Indication: TYPE 2 DIABETES MELLITUS
     Dosage: 1 MG
     Dates: start: 2000
  9. SYNTHROID [Concomitant]
     Indication: HYPOTHYROIDISM
     Dosage: 125 MCG
     Dates: start: 2000
  10. GLUCOPHAGE [Concomitant]
     Indication: TYPE 2 DIABETES MELLITUS
     Dosage: 2000 MG
     Dates: start: 2000
  11. MULTIVITAMINS [Concomitant]
  12. K-DUR [Concomitant]
     Dosage: 20 MEQ
  13. ASPIRIN [Concomitant]
     Dosage: 81 MG
     Dates: end: 20120506

REACTIONS (3)
  - Lower gastrointestinal haemorrhage [Unknown]
  - Haemorrhage [Unknown]
  - Blood urea increased [Unknown]
